FAERS Safety Report 22396245 (Version 1)
Quarter: 2023Q2

REPORT INFORMATION
  Report Type: Spontaneous
  Country: US (occurrence: US)
  Receive Date: 20230601
  Receipt Date: 20230601
  Transmission Date: 20230722
  Serious: No
  Sender: FDA-Public Use
  Company Number: US-APIL-2314389US

PATIENT
  Sex: Female
  Weight: 54.431 kg

DRUGS (1)
  1. LO LOESTRIN FE [Suspect]
     Active Substance: ETHINYL ESTRADIOL\NORETHINDRONE ACETATE
     Indication: Dysmenorrhoea
     Dosage: 1 DF, QD
     Route: 048

REACTIONS (4)
  - Off label use [Unknown]
  - Amenorrhoea [Not Recovered/Not Resolved]
  - Vomiting [Recovered/Resolved]
  - Drug ineffective for unapproved indication [Unknown]
